FAERS Safety Report 6154977-7 (Version None)
Quarter: 2009Q2

REPORT INFORMATION
  Report Type: 
  Country: None (occurrence: None)
  Receive Date: 20090414
  Receipt Date: 20090406
  Transmission Date: 20091009
  Serious: Yes (Hospitalization)
  Sender: FDA-Public Use
  Company Number: MY-ABBOTT-09P-101-0559072-00

PATIENT
  Sex: Male
  Weight: 65 kg

DRUGS (17)
  1. RITONAVIR [Suspect]
     Indication: HIV INFECTION
     Route: 048
     Dates: start: 20080611, end: 20080611
  2. RITONAVIR [Suspect]
     Route: 048
     Dates: start: 20080612, end: 20090223
  3. RITONAVIR [Suspect]
     Dates: start: 20090224, end: 20090224
  4. RITONAVIR [Suspect]
     Dates: start: 20090311, end: 20090311
  5. RITONAVIR [Suspect]
     Route: 048
     Dates: start: 20090312
  6. TMC114 [Concomitant]
     Indication: HIV INFECTION
     Route: 048
     Dates: start: 20080611, end: 20090225
  7. TMC114 [Concomitant]
     Route: 048
     Dates: start: 20090311
  8. STAVUDINE [Concomitant]
     Indication: HIV INFECTION
     Route: 048
     Dates: start: 20080611, end: 20090224
  9. TENOFOVIR DISOPROXIL FUMARATE [Concomitant]
     Indication: HIV INFECTION
     Route: 048
     Dates: start: 20080612, end: 20090224
  10. TENOFOVIR DISOPROXIL FUMARATE [Concomitant]
     Route: 048
     Dates: start: 20090312
  11. METFORMIN HCL [Concomitant]
     Indication: DRUG USE FOR UNKNOWN INDICATION
     Route: 048
     Dates: end: 20090224
  12. DRV [Concomitant]
     Indication: HIV INFECTION
     Dates: start: 20080611, end: 20080611
  13. DRV [Concomitant]
     Dates: start: 20080612, end: 20090223
  14. DRV [Concomitant]
     Dates: start: 20090224, end: 20090224
  15. DRV [Concomitant]
     Dates: start: 20090311, end: 20090311
  16. DRV [Concomitant]
     Dates: start: 20090312
  17. ZIDOVUDINE [Concomitant]
     Indication: HIV INFECTION
     Route: 048
     Dates: start: 20090311

REACTIONS (2)
  - LACTIC ACIDOSIS [None]
  - WEIGHT DECREASED [None]
